FAERS Safety Report 9457452 (Version 5)
Quarter: 2014Q2

REPORT INFORMATION
  Report Type: Spontaneous
  Country: JP (occurrence: JP)
  Receive Date: 20130814
  Receipt Date: 20140522
  Transmission Date: 20141212
  Serious: Yes (Hospitalization)
  Sender: FDA-Public Use
  Company Number: JP-JNJFOC-20130805022

PATIENT
  Age: 26 Year
  Sex: Female
  Weight: 40 kg

DRUGS (8)
  1. GOLIMUMAB [Suspect]
     Indication: JUVENILE IDIOPATHIC ARTHRITIS
     Route: 058
     Dates: start: 20130422, end: 20130628
  2. GOLIMUMAB [Suspect]
     Indication: JUVENILE IDIOPATHIC ARTHRITIS
     Route: 058
     Dates: start: 2008
  3. METOLATE [Suspect]
     Indication: JUVENILE IDIOPATHIC ARTHRITIS
     Route: 048
     Dates: end: 20130721
  4. PREDNISOLONE [Suspect]
     Indication: JUVENILE IDIOPATHIC ARTHRITIS
     Route: 048
  5. BONALON [Concomitant]
     Indication: OSTEOPOROSIS PROPHYLAXIS
     Route: 048
  6. FOLIAMIN [Concomitant]
     Indication: ANAEMIA PROPHYLAXIS
     Route: 048
     Dates: end: 20130721
  7. NEXIUM [Concomitant]
     Indication: GASTRITIS PROPHYLAXIS
     Route: 048
  8. MOHRUS [Concomitant]
     Indication: JUVENILE IDIOPATHIC ARTHRITIS
     Route: 062
     Dates: end: 20130721

REACTIONS (3)
  - Diarrhoea [Recovered/Resolved]
  - Blood pressure decreased [Recovered/Resolved]
  - Interstitial lung disease [Recovered/Resolved]
